FAERS Safety Report 12133543 (Version 1)
Quarter: 2016Q1

REPORT INFORMATION
  Report Type: Report from Study
  Country: US (occurrence: US)
  Receive Date: 20160301
  Receipt Date: 20160301
  Transmission Date: 20160526
  Serious: Yes (Other)
  Sender: FDA-Public Use
  Company Number: US-AMGEN-USASL2016023076

PATIENT
  Age: 59 Year
  Sex: Female

DRUGS (1)
  1. ENBREL [Suspect]
     Active Substance: ETANERCEPT
     Indication: RHEUMATOID ARTHRITIS
     Dosage: 50 MG, QWK
     Route: 065

REACTIONS (6)
  - Surgery [Unknown]
  - Bladder disorder [Unknown]
  - Knee arthroplasty [Unknown]
  - Bursitis infective staphylococcal [Unknown]
  - Influenza [Unknown]
  - Intra-abdominal haematoma [Unknown]
